FAERS Safety Report 12398803 (Version 3)
Quarter: 2018Q3

REPORT INFORMATION
  Report Type: Spontaneous
  Country: US (occurrence: US)
  Receive Date: 20160524
  Receipt Date: 20180712
  Transmission Date: 20181010
  Serious: No
  Sender: FDA-Public Use
  Company Number: US-PFIZER INC-2016046273

PATIENT
  Age: 80 Year
  Sex: Female
  Weight: 52.15 kg

DRUGS (3)
  1. LYRICA [Suspect]
     Active Substance: PREGABALIN
     Indication: NEURALGIA
  2. LYRICA [Suspect]
     Active Substance: PREGABALIN
     Indication: NEUROPATHY PERIPHERAL
     Dosage: 75 MG, 2X/DAY
     Route: 048
     Dates: start: 20151223
  3. LYRICA [Suspect]
     Active Substance: PREGABALIN
     Indication: BACK DISORDER

REACTIONS (5)
  - Pain [Unknown]
  - Peroneal nerve palsy [Unknown]
  - Drug prescribing error [Unknown]
  - Drug dose omission [Unknown]
  - Intentional product use issue [Unknown]

NARRATIVE: CASE EVENT DATE: 201806
